FAERS Safety Report 8538184-6 (Version None)
Quarter: 2012Q3

REPORT INFORMATION
  Report Type: 
  Country: None (occurrence: None)
  Receive Date: 20120726
  Receipt Date: 20120718
  Transmission Date: 20120928
  Serious: Yes (Other)
  Sender: FDA-Public Use
  Company Number: DE-BRISTOL-MYERS SQUIBB COMPANY-16778037

PATIENT
  Age: 12 Year
  Sex: Male

DRUGS (1)
  1. ABILIFY [Suspect]
     Indication: ASPERGER'S DISORDER
     Dosage: 1DF=1/2 TAB OF 5MG DOSE INC 5 MG:14OCT11-1NOV11 DOSE RED 1/2 TABS:2NOV11-5DEC11
     Route: 048
     Dates: start: 20110919

REACTIONS (5)
  - GASTROINTESTINAL PAIN [None]
  - PANCREATITIS [None]
  - INTENTION TREMOR [None]
  - OFF LABEL USE [None]
  - ANXIETY [None]
